FAERS Safety Report 5982535-3 (Version None)
Quarter: 2008Q4

REPORT INFORMATION
  Report Type: 
  Country: None (occurrence: None)
  Receive Date: 20081205
  Receipt Date: 20081205
  Transmission Date: 20090506
  Serious: No
  Sender: FDA-Public Use
  Company Number: None

PATIENT
  Age: 39 Year
  Sex: Female
  Weight: 104.3273 kg

DRUGS (1)
  1. LEVAQUIN [Suspect]
     Indication: SINUSITIS
     Dosage: 500 MG ONCE DAILY PO
     Route: 048
     Dates: start: 20080930, end: 20081003

REACTIONS (4)
  - ABDOMINAL DISCOMFORT [None]
  - ARTHRALGIA [None]
  - PAIN IN EXTREMITY [None]
  - VISUAL IMPAIRMENT [None]
